FAERS Safety Report 4912992-2 (Version None)
Quarter: 2006Q1

REPORT INFORMATION
  Report Type: 
  Country: None (occurrence: None)
  Receive Date: 20060210
  Receipt Date: 20060201
  Transmission Date: 20060701
  Serious: No
  Sender: FDA-Public Use
  Company Number: TPA2006A00174

PATIENT
  Age: 63 Year
  Sex: Male

DRUGS (4)
  1. ACTOS [Suspect]
     Indication: DIABETES MELLITUS
     Dosage: QAM, PER ORAL
     Route: 048
  2. HUMULIN R [Suspect]
     Indication: DIABETES MELLITUS
     Dosage: SLIDING SCALE, DAILY,
     Dates: start: 20060110
  3. GLIMEPIRIDE [Suspect]
     Indication: DIABETES MELLITUS
     Dosage: 2 IN 1 D,
  4. LANTUS [Suspect]
     Indication: DIABETES MELLITUS

REACTIONS (4)
  - BLOOD GLUCOSE ABNORMAL [None]
  - HAEMORRHAGE [None]
  - HEPATIC FAILURE [None]
  - HYPERPHAGIA [None]
